FAERS Safety Report 8010852-4 (Version None)
Quarter: 2011Q4

REPORT INFORMATION
  Report Type: 
  Country: None (occurrence: None)
  Receive Date: 20111228
  Receipt Date: 20111220
  Transmission Date: 20120403
  Serious: Yes (Hospitalization)
  Sender: FDA-Public Use
  Company Number: PHHY2011IT101075

PATIENT
  Sex: Female

DRUGS (1)
  1. AMOXICILLIN [Suspect]
     Indication: BRONCHITIS
     Dosage: 1000 MG, UNK
     Route: 048
     Dates: start: 20111021, end: 20111021

REACTIONS (2)
  - ERYTHEMA [None]
  - ABDOMINAL PAIN [None]
